FAERS Safety Report 9188085 (Version 1)
Quarter: 2013Q1

REPORT INFORMATION
  Report Type: Spontaneous
  Country: FR (occurrence: FR)
  Receive Date: 20130325
  Receipt Date: 20130325
  Transmission Date: 20140127
  Serious: Yes (Hospitalization)
  Sender: FDA-Public Use
  Company Number: FR-GLAXOSMITHKLINE-B0875309A

PATIENT
  Age: 53 None
  Sex: Male

DRUGS (9)
  1. ZELITREX [Suspect]
     Indication: PROPHYLAXIS
     Dosage: 500MG PER DAY
     Route: 048
     Dates: start: 20121218, end: 20130115
  2. ZYLORIC [Suspect]
     Indication: HYPERURICAEMIA
     Route: 048
     Dates: start: 20121107, end: 20130109
  3. BACTRIM FORTE [Suspect]
     Indication: PROPHYLAXIS
     Dosage: 1TAB TWO TIMES PER WEEK
     Route: 048
     Dates: start: 20121218, end: 20130107
  4. MABTHERA [Suspect]
     Indication: LEUKAEMIA
     Dosage: 735MG SINGLE DOSE
     Route: 042
     Dates: start: 20121218, end: 20121218
  5. ZOPHREN [Concomitant]
     Indication: PROPHYLAXIS
     Dosage: 8MG TWICE PER DAY
     Route: 048
     Dates: start: 20121218, end: 20121223
  6. FLUDARABINE [Concomitant]
     Indication: LEUKAEMIA
     Dosage: 4UNIT TWICE PER DAY
     Route: 048
     Dates: start: 20121219, end: 20121221
  7. ENDOXAN [Concomitant]
     Indication: LEUKAEMIA
     Route: 048
     Dates: start: 20121219, end: 20121221
  8. XANAX [Concomitant]
     Indication: ANXIETY
     Dosage: .5MG PER DAY
     Route: 048
     Dates: start: 20121026, end: 20130115
  9. GRANOCYTE [Concomitant]
     Dates: start: 20121228, end: 20130103

REACTIONS (12)
  - Drug reaction with eosinophilia and systemic symptoms [Recovered/Resolved]
  - Dermatitis exfoliative [Recovered/Resolved]
  - Face oedema [Recovered/Resolved]
  - Eosinophilia [Recovered/Resolved]
  - Pruritus [Recovered/Resolved]
  - Chills [Recovered/Resolved]
  - Paraesthesia [Unknown]
  - Eczema [Recovered/Resolved]
  - Rash vesicular [Recovered/Resolved]
  - Skin exfoliation [Recovered/Resolved]
  - Lymphadenopathy [Unknown]
  - Purpura [Recovered/Resolved]
